FAERS Safety Report 13266174 (Version 1)
Quarter: 2017Q1

REPORT INFORMATION
  Report Type: Spontaneous
  Country: US (occurrence: US)
  Receive Date: 20170223
  Receipt Date: 20170223
  Transmission Date: 20170428
  Serious: No
  Sender: FDA-Public Use
  Company Number: US-ELI_LILLY_AND_COMPANY-US201702009003

PATIENT
  Age: 71 Year
  Sex: Male

DRUGS (11)
  1. HUMALOG [Suspect]
     Active Substance: INSULIN LISPRO
     Dosage: 32 U, QD
     Route: 065
     Dates: start: 20170219
  2. HUMALOG [Suspect]
     Active Substance: INSULIN LISPRO
     Dosage: 30 U, QD
     Route: 065
     Dates: start: 20170221
  3. LANTUS [Concomitant]
     Active Substance: INSULIN GLARGINE
     Dosage: 30 U, QD
     Route: 065
  4. HUMALOG [Suspect]
     Active Substance: INSULIN LISPRO
     Dosage: 29 U, QD
     Route: 065
     Dates: start: 20170220
  5. HUMALOG [Suspect]
     Active Substance: INSULIN LISPRO
     Dosage: UNK,  FOUR TIMES PER DAY
     Route: 065
  6. HUMALOG [Suspect]
     Active Substance: INSULIN LISPRO
     Indication: TYPE 1 DIABETES MELLITUS
     Dosage: 26 U, QD
     Route: 065
     Dates: start: 20170219
  7. HUMALOG [Suspect]
     Active Substance: INSULIN LISPRO
     Dosage: 33 U, QD
     Route: 065
     Dates: start: 20170219
  8. HUMALOG [Suspect]
     Active Substance: INSULIN LISPRO
     Dosage: 10 U, QD
     Route: 065
     Dates: start: 20170219
  9. HUMALOG [Suspect]
     Active Substance: INSULIN LISPRO
     Dosage: 26 U, QD
     Route: 065
     Dates: start: 20170220
  10. HUMALOG [Suspect]
     Active Substance: INSULIN LISPRO
     Indication: TYPE 2 DIABETES MELLITUS
     Dosage: UNK,  FOUR TIMES PER DAY
     Route: 065
     Dates: start: 201511
  11. HUMALOG [Suspect]
     Active Substance: INSULIN LISPRO
     Dosage: 6 U, QD
     Route: 065
     Dates: start: 20170220

REACTIONS (3)
  - Drug ineffective [Unknown]
  - Glycosylated haemoglobin increased [Unknown]
  - Blood glucose increased [Not Recovered/Not Resolved]

NARRATIVE: CASE EVENT DATE: 20170214
